FAERS Safety Report 9773083 (Version 1)
Quarter: 2013Q4

REPORT INFORMATION
  Report Type: Spontaneous
  Country: FR (occurrence: FR)
  Receive Date: 20131219
  Receipt Date: 20131219
  Transmission Date: 20140711
  Serious: Yes (Hospitalization)
  Sender: FDA-Public Use
  Company Number: FR-ACTELION-A-CH2013-92621

PATIENT
  Age: 49 Year
  Sex: Female

DRUGS (8)
  1. TRACLEER [Suspect]
     Indication: PULMONARY ARTERIAL HYPERTENSION
     Dosage: 125 MG, BID
     Route: 048
     Dates: start: 200503
  2. FLOLAN [Concomitant]
  3. XANAX [Concomitant]
  4. LASILIX [Concomitant]
     Dosage: 10 MG, UNK
  5. KARDEGIC [Concomitant]
     Dosage: 75 MG, UNK
  6. WELLVONE [Concomitant]
  7. MOPRAL [Concomitant]
  8. SERC [Concomitant]

REACTIONS (2)
  - Hepatic cirrhosis [Unknown]
  - Focal nodular hyperplasia [Unknown]
